FAERS Safety Report 25264537 (Version 1)
Quarter: 2025Q2

REPORT INFORMATION
  Report Type: Spontaneous
  Country: US (occurrence: None)
  Receive Date: 20250502
  Receipt Date: 20250502
  Transmission Date: 20250717
  Serious: No
  Sender: FDA-CTU
  Company Number: None

PATIENT
  Sex: Female

DRUGS (10)
  1. VIGABATRIN [Suspect]
     Active Substance: VIGABATRIN
     Indication: Muscle spasms
     Dosage: FREQUENCY : TWICE A DAY;?OTHER ROUTE : GTUBE;?
     Route: 050
  2. FLOVENT [Concomitant]
     Active Substance: FLUTICASONE PROPIONATE
  3. FLONASE ALLERGY RELIEF [Concomitant]
     Active Substance: FLUTICASONE PROPIONATE
  4. ALBUTEROL [Concomitant]
     Active Substance: ALBUTEROL
  5. SALINE [Concomitant]
     Active Substance: SODIUM CHLORIDE
  6. ONFI [Concomitant]
     Active Substance: CLOBAZAM
  7. MONTELUKAST SODIUM [Concomitant]
     Active Substance: MONTELUKAST SODIUM
  8. CETIRIZINE HCL [Concomitant]
     Active Substance: CETIRIZINE HYDROCHLORIDE
  9. PHENOBARBITAL [Concomitant]
     Active Substance: PHENOBARBITAL
  10. NEXIUM [Concomitant]
     Active Substance: ESOMEPRAZOLE MAGNESIUM

REACTIONS (2)
  - Off label use [None]
  - Pneumonia aspiration [None]
